FAERS Safety Report 5192495-3 (Version None)
Quarter: 2006Q4

REPORT INFORMATION
  Report Type: 
  Country: None (occurrence: None)
  Receive Date: 20061220
  Receipt Date: 20061211
  Transmission Date: 20070319
  Serious: Yes (Disabling)
  Sender: FDA-Public Use
  Company Number: 2006152442

PATIENT
  Age: 79 Year
  Sex: Female
  Weight: 64 kg

DRUGS (4)
  1. LIPITOR [Suspect]
     Indication: BLOOD CHOLESTEROL
     Dosage: 10 MG (10 MG, 1 IN 1 D), ORAL
     Route: 048
     Dates: start: 20050501, end: 20060901
  2. ASPIRIN [Concomitant]
  3. ATENOLOL [Concomitant]
  4. RAMIPRIL [Concomitant]

REACTIONS (3)
  - AGORAPHOBIA [None]
  - ANXIETY [None]
  - TEARFULNESS [None]
